FAERS Safety Report 9900005 (Version 1)
Quarter: 2014Q1

REPORT INFORMATION
  Report Type: Spontaneous
  Country: US (occurrence: US)
  Receive Date: 20140214
  Receipt Date: 20140214
  Transmission Date: 20141002
  Serious: No
  Sender: FDA-Public Use
  Company Number: US-009507513-1402USA005627

PATIENT
  Sex: Female

DRUGS (5)
  1. ZOCOR [Suspect]
     Indication: BLOOD CHOLESTEROL INCREASED
     Dosage: 20 MG, ONCE DAILY
     Route: 048
     Dates: start: 200602
  2. LIPITOR [Suspect]
     Indication: BLOOD CHOLESTEROL INCREASED
     Dosage: UNK
     Dates: start: 200202
  3. CRESTOR [Suspect]
     Indication: BLOOD CHOLESTEROL INCREASED
  4. TOPROL XL TABLETS [Concomitant]
     Route: 048
  5. ATACAND [Concomitant]

REACTIONS (2)
  - Abasia [Recovered/Resolved]
  - Myalgia [Recovered/Resolved]
